FAERS Safety Report 8508445-5 (Version None)
Quarter: 2012Q3

REPORT INFORMATION
  Report Type: 
  Country: None (occurrence: None)
  Receive Date: 20120713
  Receipt Date: 20120703
  Transmission Date: 20120928
  Serious: Yes (Hospitalization, Other)
  Sender: FDA-Public Use
  Company Number: US-SANOFI-AVENTIS-2012SA048276

PATIENT
  Age: 66 Year
  Sex: Male

DRUGS (9)
  1. ASPIRIN [Concomitant]
  2. XARELTO [Concomitant]
  3. PLAVIX [Suspect]
  4. XANAX [Concomitant]
  5. GLIPIZIDE AND METFORMIN HCL [Concomitant]
  6. MULTAQ [Suspect]
     Dates: start: 20120702
  7. MULTI-VITAMINS [Concomitant]
  8. LISINOPRIL AND HYDROCHLOROTHIAZIDE [Concomitant]
  9. SULFAMETHOXAZOLE AND TRIMETHOPRIM [Suspect]

REACTIONS (8)
  - HEADACHE [None]
  - STAPHYLOCOCCAL INFECTION [None]
  - FEELING ABNORMAL [None]
  - DIZZINESS [None]
  - DISORIENTATION [None]
  - CHEST DISCOMFORT [None]
  - DYSPNOEA [None]
  - ARRHYTHMIA [None]
